FAERS Safety Report 9661124 (Version 2)
Quarter: 2014Q2

REPORT INFORMATION
  Report Type: Spontaneous
  Country: CZ (occurrence: CZ)
  Receive Date: 20131031
  Receipt Date: 20140418
  Transmission Date: 20141212
  Serious: Yes (Hospitalization)
  Sender: FDA-Public Use
  Company Number: CZ-JNJFOC-20131016829

PATIENT
  Age: 22 Year
  Sex: Male

DRUGS (1)
  1. PALIPERIDONE PALMITATE [Suspect]
     Indication: SCHIZOPHRENIA, PARANOID TYPE
     Route: 030

REACTIONS (4)
  - Respiratory disorder [Recovered/Resolved]
  - Dystonia [Recovered/Resolved]
  - Akathisia [Recovered/Resolved]
  - Off label use [Not Recovered/Not Resolved]
